FAERS Safety Report 7579478-0 (Version None)
Quarter: 2011Q2

REPORT INFORMATION
  Report Type: 
  Country: None (occurrence: None)
  Receive Date: 20110629
  Receipt Date: 20091122
  Transmission Date: 20111010
  Serious: Yes (Death, Other)
  Sender: FDA-Public Use
  Company Number: US-BAYER-200940721NA

PATIENT
  Age: 78 Year
  Sex: Male
  Weight: 70 kg

DRUGS (5)
  1. TRASYLOL [Suspect]
     Indication: PRODUCT USED FOR UNKNOWN INDICATION
     Route: 042
     Dates: start: 20010101
  2. MOTRIN [Concomitant]
     Dosage: AS NEEDED
  3. ADVIL LIQUI-GELS [Concomitant]
     Indication: CARDIAC OPERATION
     Dosage: AS NEEDED
     Dates: start: 20010101
  4. ASPIRIN [Concomitant]
     Dosage: AS NEEDED
  5. IBUPROFEN [Concomitant]
     Dosage: AS NEEDED

REACTIONS (14)
  - FEAR [None]
  - RENAL FAILURE [None]
  - PAIN [None]
  - ANHEDONIA [None]
  - RENAL INJURY [None]
  - MULTI-ORGAN FAILURE [None]
  - ANXIETY [None]
  - EMOTIONAL DISTRESS [None]
  - STRESS [None]
  - UNEVALUABLE EVENT [None]
  - DEATH [None]
  - INJURY [None]
  - EMOTIONAL DISORDER [None]
  - RENAL IMPAIRMENT [None]
